FAERS Safety Report 22155388 (Version 1)
Quarter: 2023Q1

REPORT INFORMATION
  Report Type: Spontaneous
  Country: US (occurrence: US)
  Receive Date: 20230330
  Receipt Date: 20230330
  Transmission Date: 20230418
  Serious: Yes (Other)
  Sender: FDA-Public Use
  Company Number: US-AMERICAN REGENT INC-2023000742

PATIENT
  Age: 55 Year
  Sex: Female

DRUGS (4)
  1. IBUTILIDE FUMARATE [Suspect]
     Active Substance: IBUTILIDE FUMARATE
     Indication: Cardioversion
     Dosage: UNK
     Route: 065
  2. IBUTILIDE FUMARATE [Suspect]
     Active Substance: IBUTILIDE FUMARATE
     Indication: Atrial fibrillation
  3. FUROSEMIDE [Concomitant]
     Active Substance: FUROSEMIDE
     Indication: Cardiogenic shock
     Dosage: UNK
     Route: 042
  4. DOBUTAMINE [Concomitant]
     Active Substance: DOBUTAMINE HYDROCHLORIDE
     Indication: Cardiogenic shock
     Dosage: UNK
     Route: 042

REACTIONS (1)
  - Cardiogenic shock [Unknown]
